FAERS Safety Report 6753713-0 (Version None)
Quarter: 2010Q2

REPORT INFORMATION
  Report Type: 
  Country: None (occurrence: None)
  Receive Date: 20100601
  Receipt Date: 20100521
  Transmission Date: 20101027
  Serious: Yes (Life-Threatening, Hospitalization)
  Sender: FDA-Public Use
  Company Number: 7005532

PATIENT
  Age: 58 Year
  Sex: Female
  Weight: 61 kg

DRUGS (4)
  1. REBIF [Suspect]
     Indication: MULTIPLE SCLEROSIS
     Dosage: 44 MCG, 3 IN 1 WK, SUBCUTANEOUS
     Route: 058
     Dates: start: 20100212
  2. NORVASC [Concomitant]
  3. VITAMIN D [Concomitant]
  4. ELAVIL (AMIRTIPTYLINE HYDROCHLORIDE) [Concomitant]

REACTIONS (5)
  - ACINETOBACTER INFECTION [None]
  - CENTRAL NERVOUS SYSTEM INFECTION [None]
  - INFLUENZA LIKE ILLNESS [None]
  - INJECTION SITE REACTION [None]
  - SEPSIS [None]
